FAERS Safety Report 13604044 (Version 3)
Quarter: 2017Q4

REPORT INFORMATION
  Report Type: Spontaneous
  Country: US (occurrence: US)
  Receive Date: 20170602
  Receipt Date: 20171026
  Transmission Date: 20180320
  Serious: No
  Sender: FDA-Public Use
  Company Number: US-BAUSCH-BL-2017-007723

PATIENT
  Age: 10 Year
  Sex: Female

DRUGS (3)
  1. KETOCONAZOLE. [Concomitant]
     Active Substance: KETOCONAZOLE
     Indication: DERMATITIS
  2. ELIDEL [Suspect]
     Active Substance: PIMECROLIMUS
     Indication: DRY SKIN
     Route: 061
     Dates: start: 20170321, end: 20170321
  3. ELIDEL [Suspect]
     Active Substance: PIMECROLIMUS
     Indication: PAPULE

REACTIONS (3)
  - Off label use [Unknown]
  - Erythema [Recovering/Resolving]
  - Burning sensation [Recovering/Resolving]

NARRATIVE: CASE EVENT DATE: 20170321
